FAERS Safety Report 6384832-9 (Version None)
Quarter: 2009Q4

REPORT INFORMATION
  Report Type: 
  Country: None (occurrence: None)
  Receive Date: 20091002
  Receipt Date: 20090924
  Transmission Date: 20100525
  Serious: Yes (Hospitalization)
  Sender: FDA-Public Use
  Company Number: US-BIOGENIDEC-2009BI020618

PATIENT
  Age: 68 Year
  Sex: Male
  Weight: 62 kg

DRUGS (8)
  1. TYSABRI [Suspect]
     Indication: MULTIPLE SCLEROSIS
     Route: 042
     Dates: start: 20071130
  2. AMITIZA [Concomitant]
     Route: 048
  3. ASPIRIN [Concomitant]
     Indication: THROMBOSIS PROPHYLAXIS
     Route: 048
  4. BACLOFEN [Concomitant]
     Indication: MUSCLE SPASTICITY
     Route: 048
  5. DEXADRINE [Concomitant]
     Indication: FATIGUE
     Route: 048
     Dates: start: 20080814
  6. FOSAMAX [Concomitant]
     Route: 048
  7. GABAPENTIN [Concomitant]
     Route: 048
  8. FOLIC ACID [Concomitant]
     Route: 048

REACTIONS (1)
  - INTERVERTEBRAL DISC PROTRUSION [None]
